FAERS Safety Report 18263350 (Version 1)
Quarter: 2020Q3

REPORT INFORMATION
  Report Type: Spontaneous
  Country: CN (occurrence: CN)
  Receive Date: 20200914
  Receipt Date: 20200914
  Transmission Date: 20201103
  Serious: Yes (Other)
  Sender: FDA-Public Use
  Company Number: CN-ROCHE-2677064

PATIENT
  Age: 51 Year
  Sex: Male
  Weight: 61 kg

DRUGS (3)
  1. BEVACIZUMAB. [Suspect]
     Active Substance: BEVACIZUMAB
     Indication: LUNG ADENOCARCINOMA
     Dosage: ON 24 DEC 2019, 15?JAN?2020, 12?FEB?2020, 07 MAR 2020
     Route: 065
  2. PEMETREXED. [Concomitant]
     Active Substance: PEMETREXED
  3. BEVACIZUMAB. [Suspect]
     Active Substance: BEVACIZUMAB
     Indication: METASTASES TO LYMPH NODES

REACTIONS (1)
  - Skin reaction [Unknown]
